FAERS Safety Report 7440352-1 (Version None)
Quarter: 2011Q2

REPORT INFORMATION
  Report Type: 
  Country: None (occurrence: None)
  Receive Date: 20110427
  Receipt Date: 20110411
  Transmission Date: 20111010
  Serious: Yes (Hospitalization)
  Sender: FDA-Public Use
  Company Number: JP-MERCK-1104USA01453

PATIENT
  Age: 64 Year
  Sex: Female

DRUGS (4)
  1. JANUVIA [Suspect]
     Indication: TYPE 2 DIABETES MELLITUS
     Route: 048
     Dates: start: 20100928, end: 20101208
  2. AMARYL [Concomitant]
     Route: 065
  3. ACTOS [Concomitant]
     Route: 065
  4. MELBIN [Concomitant]
     Route: 065

REACTIONS (1)
  - PANCREATIC ABSCESS [None]
